FAERS Safety Report 24377357 (Version 1)
Quarter: 2024Q3

REPORT INFORMATION
  Report Type: Spontaneous
  Country: RO (occurrence: RO)
  Receive Date: 20240930
  Receipt Date: 20240930
  Transmission Date: 20241017
  Serious: Yes (Hospitalization)
  Sender: ABBVIE
  Company Number: RO-RICHTER-2024-GR-010158

PATIENT
  Age: 59 Year
  Sex: Female

DRUGS (2)
  1. CARIPRAZINE [Suspect]
     Active Substance: CARIPRAZINE
     Indication: Bipolar disorder
     Route: 065
  2. VALPROIC ACID [Suspect]
     Active Substance: VALPROIC ACID
     Indication: Bipolar disorder
     Route: 065

REACTIONS (10)
  - Depressed mood [Recovered/Resolved]
  - Confabulation [Recovered/Resolved]
  - Persecutory delusion [Recovered/Resolved]
  - Neurological decompensation [Not Recovered/Not Resolved]
  - Somatic symptom disorder [Recovered/Resolved]
  - Sleep disorder [Recovered/Resolved]
  - Diarrhoea [Recovered/Resolved]
  - Anxiety [Recovered/Resolved]
  - Motor dysfunction [Not Recovered/Not Resolved]
  - Auditory perseveration [Not Recovered/Not Resolved]
